FAERS Safety Report 6610966-7 (Version None)
Quarter: 2010Q1

REPORT INFORMATION
  Report Type: 
  Country: None (occurrence: None)
  Receive Date: 20100222
  Receipt Date: 20100208
  Transmission Date: 20100710
  Serious: Yes (Death, Life-Threatening, Hospitalization)
  Sender: FDA-Public Use
  Company Number: TW-JNJFOC-20090805680

PATIENT
  Age: 74 Year
  Sex: Female

DRUGS (6)
  1. DECITABINE (DECITABINE) (LYOPHILIZED POWDER [Suspect]
     Dosage: 20 MG/M2, 1 IN 1 DAY, INTRAVENOUS
     Route: 042
     Dates: start: 20090721, end: 20090725
  2. VORICONAZOLE [Concomitant]
  3. GLIPIZIDE [Concomitant]
  4. FOLIC ACID [Concomitant]
  5. COLD AND COUGH MEDICINE (COUGH AND COLD PREPARATIONS) CAPSULES [Concomitant]
  6. ACETAMINOPHEN [Concomitant]

REACTIONS (5)
  - BLOOD PRESSURE DECREASED [None]
  - HEPATITIS ACUTE [None]
  - PNEUMONIA [None]
  - RESPIRATORY FAILURE [None]
  - SOMNOLENCE [None]
